FAERS Safety Report 25275675 (Version 1)
Quarter: 2025Q2

REPORT INFORMATION
  Report Type: Spontaneous
  Country: DE (occurrence: DE)
  Receive Date: 20250507
  Receipt Date: 20250507
  Transmission Date: 20250717
  Serious: Yes (Hospitalization)
  Sender: ABBVIE
  Company Number: DE-DCGMA-25204860

PATIENT
  Sex: Male
  Weight: 100 kg

DRUGS (3)
  1. RINVOQ [Suspect]
     Active Substance: UPADACITINIB
     Indication: Colitis
     Dosage: DAILY DOSE: 30 MG EVERY 1 DAY
     Route: 048
     Dates: start: 20240301, end: 20250207
  2. MESALAMINE [Concomitant]
     Active Substance: MESALAMINE
     Indication: Colitis
     Dosage: DAILY DOSE: 3 G EVERY 1 DAY
     Route: 065
  3. URSODIOL [Concomitant]
     Active Substance: URSODIOL
     Indication: Cholangitis sclerosing
     Dosage: DAILY DOSE: 1500 MG EVERY 1 DAY
     Route: 065

REACTIONS (1)
  - Drug-induced liver injury [Recovering/Resolving]
